FAERS Safety Report 15452435 (Version 1)
Quarter: 2018Q4

REPORT INFORMATION
  Report Type: Spontaneous
  Country: US (occurrence: US)
  Receive Date: 20181001
  Receipt Date: 20181001
  Transmission Date: 20190204
  Serious: No
  Sender: FDA-Public Use
  Company Number: US-PFIZER INC-2016324287

PATIENT
  Age: 16 Year
  Sex: Male
  Weight: 74 kg

DRUGS (3)
  1. GENOTROPIN [Suspect]
     Active Substance: SOMATROPIN
     Dosage: 4.8 MG, DAILY
  2. GENOTROPIN [Suspect]
     Active Substance: SOMATROPIN
     Dosage: 4.5 MG, DAILY
     Route: 058
  3. GENOTROPIN [Suspect]
     Active Substance: SOMATROPIN
     Dosage: 2.2 MG, DAILY
     Dates: start: 20130813

REACTIONS (5)
  - Incorrect dose administered by device [Unknown]
  - Product prescribing error [Unknown]
  - Aspartate aminotransferase decreased [Unknown]
  - Vitamin D decreased [Unknown]
  - Device issue [Unknown]

NARRATIVE: CASE EVENT DATE: 20180614
